FAERS Safety Report 23311882 (Version 1)
Quarter: 2023Q4

REPORT INFORMATION
  Report Type: Spontaneous
  Country: US (occurrence: None)
  Receive Date: 20231218
  Receipt Date: 20231218
  Transmission Date: 20240110
  Serious: No
  Sender: FDA-Public Use
  Company Number: None

PATIENT
  Age: 29 Year
  Sex: Female
  Weight: 140 kg

DRUGS (1)
  1. MONOFERRIC [Suspect]
     Active Substance: FERRIC DERISOMALTOSE
     Indication: Anaemia of pregnancy
     Dates: start: 20231214, end: 20231214

REACTIONS (4)
  - Chest pain [None]
  - Dyspnoea [None]
  - Flushing [None]
  - Maternal exposure during pregnancy [None]

NARRATIVE: CASE EVENT DATE: 20231214
